FAERS Safety Report 8159938-4 (Version None)
Quarter: 2012Q1

REPORT INFORMATION
  Report Type: 
  Country: None (occurrence: None)
  Receive Date: 20120103
  Receipt Date: 20111018
  Transmission Date: 20120608
  Serious: No
  Sender: FDA-Public Use
  Company Number: AE-2011-002438

PATIENT
  Age: 69 Year
  Sex: Female
  Weight: 58.0604 kg

DRUGS (3)
  1. INCIVEK [Suspect]
     Dosage: 2250 MG (750 MG,1 IN 8 HR),ORAL
     Route: 048
     Dates: start: 20110926
  2. PEGASYS [Concomitant]
  3. RIBAVIRIN [Concomitant]

REACTIONS (1)
  - RASH [None]
